APPROVED DRUG PRODUCT: OPANA ER
Active Ingredient: OXYMORPHONE HYDROCHLORIDE
Strength: 5MG
Dosage Form/Route: TABLET, EXTENDED RELEASE;ORAL
Application: N201655 | Product #001
Applicant: ENDO PHARMACEUTICALS INC
Approved: Dec 9, 2011 | RLD: Yes | RS: No | Type: DISCN

PATENTS:
Patent 8808737 | Expires: Jun 21, 2027
Patent 7851482 | Expires: Jul 10, 2029
Patent 8871779 | Expires: Nov 22, 2029